FAERS Safety Report 5287726-5 (Version None)
Quarter: 2007Q1

REPORT INFORMATION
  Report Type: 
  Country: None (occurrence: None)
  Receive Date: 20070116
  Receipt Date: 20060914
  Transmission Date: 20070707
  Serious: No
  Sender: FDA-Public Use
  Company Number: 2006SP003298

PATIENT
  Age: 80 Year
  Sex: Male
  Weight: 81.6475 kg

DRUGS (3)
  1. LUNESTA [Suspect]
     Indication: INSOMNIA
     Dosage: 1 MG; PRN; ORAL
     Route: 048
     Dates: start: 20060201, end: 20060101
  2. METAMUCIL [Concomitant]
  3. STOOL SOFTENER [Concomitant]

REACTIONS (3)
  - CONSTIPATION [None]
  - DRUG INEFFECTIVE [None]
  - INSOMNIA [None]
